FAERS Safety Report 5483949-0 (Version None)
Quarter: 2007Q4

REPORT INFORMATION
  Report Type: 
  Country: None (occurrence: None)
  Receive Date: 20071010
  Receipt Date: 20071010
  Transmission Date: 20080405
  Serious: Yes (Other)
  Sender: FDA-Public Use
  Company Number: None

PATIENT
  Sex: Male
  Weight: 79.3795 kg

DRUGS (2)
  1. GLYCOLAX [Suspect]
     Indication: CONSTIPATION
     Dosage: 17 GRAMS DAILY PO
     Route: 048
     Dates: start: 20060201, end: 20071001
  2. MIRALAX [Suspect]
     Indication: CONSTIPATION
     Dosage: 17 GRAMS DAILY PO
     Route: 048
     Dates: start: 20050201, end: 20060201

REACTIONS (2)
  - DYSGEUSIA [None]
  - PAROSMIA [None]
